FAERS Safety Report 15706286 (Version 6)
Quarter: 2019Q1

REPORT INFORMATION
  Report Type: Report from Study
  Country: JP (occurrence: JP)
  Receive Date: 20181210
  Receipt Date: 20190110
  Transmission Date: 20190417
  Serious: Yes (Life-Threatening, Hospitalization)
  Sender: FDA-Public Use
  Company Number: PHHO2018JP012958

PATIENT
  Age: 65 Year
  Sex: Male
  Weight: 95.2 kg

DRUGS (41)
  1. PREDNISOLONE SODIUM SUCCINATE [Concomitant]
     Active Substance: PREDNISOLONE SODIUM SUCCINATE
     Dosage: UNK
     Route: 065
     Dates: start: 20181123, end: 20181129
  2. COMPARATOR DAUNORUBICIN [Suspect]
     Active Substance: DAUNORUBICIN
     Indication: ACUTE MYELOID LEUKAEMIA
     Dosage: 60 MG/M2, QD
     Route: 042
     Dates: start: 20181023
  3. PREDNISOLONE. [Suspect]
     Active Substance: PREDNISOLONE
     Indication: HAEMOPHAGOCYTIC LYMPHOHISTIOCYTOSIS
     Dosage: UNK
     Route: 065
     Dates: start: 20181130
  4. ALBUMIN TANNATE [Concomitant]
     Active Substance: ALBUMIN BOVINE\TANNIC ACID
     Indication: DIARRHOEA
     Dosage: UNK
     Route: 065
     Dates: start: 20181103, end: 20181119
  5. TEICOPLANIN [Concomitant]
     Active Substance: TEICOPLANIN
     Indication: FEBRILE NEUTROPENIA
     Dosage: UNK
     Route: 065
     Dates: start: 20181109, end: 20181120
  6. HYDROCORTISONE. [Concomitant]
     Active Substance: HYDROCORTISONE
     Indication: HYPONATRAEMIA
     Dosage: UNK
     Dates: start: 20181205, end: 20181214
  7. CANDESARTAN CILEXETIL. [Concomitant]
     Active Substance: CANDESARTAN CILEXETIL
     Indication: HYPERTENSION
     Route: 065
     Dates: start: 20181029
  8. THROMBOMODULIN ALFA [Concomitant]
     Active Substance: THROMBOMODULIN ALFA
     Indication: DISSEMINATED INTRAVASCULAR COAGULATION
     Route: 065
     Dates: start: 20181110, end: 20181115
  9. PKC412 [Suspect]
     Active Substance: MIDOSTAURIN
     Indication: ACUTE MYELOID LEUKAEMIA
     Dosage: 25 MG, BID
     Route: 048
     Dates: start: 20181030
  10. AMBROXOL HYDROCHLORIDE [Concomitant]
     Active Substance: AMBROXOL HYDROCHLORIDE
     Indication: PHARYNGITIS
     Route: 065
     Dates: start: 20181023, end: 20181119
  11. BEPOTASTINE BESILATE [Concomitant]
     Active Substance: BEPOTASTINE BESILATE
     Indication: RHINITIS
     Dosage: UNK
     Route: 065
     Dates: start: 20181023, end: 20181119
  12. PAZUFLOXACIN MESILATE [Concomitant]
     Active Substance: PAZUFLOXACIN MESILATE
     Indication: FEBRILE NEUTROPENIA
     Route: 065
     Dates: start: 20181120, end: 20181121
  13. CLOPERASTINE HYDROCHLORIDE [Concomitant]
     Active Substance: CLOPERASTINE HYDROCHLORIDE
     Indication: PHARYNGITIS
     Route: 065
     Dates: start: 20181023, end: 20181119
  14. AMLODIPINE BESILATE [Concomitant]
     Active Substance: AMLODIPINE BESYLATE
     Indication: HYPERTENSION
     Route: 065
     Dates: start: 20181029
  15. MEROPENEM. [Concomitant]
     Active Substance: MEROPENEM
     Indication: FEBRILE NEUTROPENIA
     Route: 065
     Dates: start: 20181107, end: 20181116
  16. LOXOPROFEN SODIUM HYDRATE [Concomitant]
     Active Substance: LOXOPROFEN SODIUM DIHYDRATE
     Dosage: UNK
     Route: 065
     Dates: start: 20181117, end: 20181119
  17. ACETAMINOPHEN. [Concomitant]
     Active Substance: ACETAMINOPHEN
     Indication: FEBRILE NEUTROPENIA
     Route: 065
     Dates: start: 20181031
  18. WHITE PETROLATUM [Concomitant]
     Active Substance: PETROLATUM
     Indication: LIP DRY
     Route: 065
     Dates: start: 20181105
  19. HYDROCORTISONE. [Concomitant]
     Active Substance: HYDROCORTISONE
     Indication: ANAL FISSURE
     Dosage: UNK
     Route: 065
     Dates: start: 20181203, end: 20181212
  20. BIO-THREE [Concomitant]
     Active Substance: HERBALS
     Indication: DIARRHOEA
     Route: 065
     Dates: start: 20181031
  21. BETAMETHASONE BUTYRATE PROPIONATE [Concomitant]
     Active Substance: BETAMETHASONE BUTYRATE PROPIONATE
     Indication: TOXIC SKIN ERUPTION
     Route: 065
     Dates: start: 20181210
  22. CELECOXIB. [Concomitant]
     Active Substance: CELECOXIB
     Indication: FEBRILE NEUTROPENIA
     Dosage: UNK
     Route: 065
     Dates: start: 20181110, end: 20181112
  23. PREDNISOLONE SODIUM SUCCINATE [Concomitant]
     Active Substance: PREDNISOLONE SODIUM SUCCINATE
     Indication: FEBRILE NEUTROPENIA
     Dosage: UNK
     Route: 065
     Dates: start: 20181117, end: 20181117
  24. FLUTICASONE FUROATE [Concomitant]
     Active Substance: FLUTICASONE FUROATE
     Indication: RHINITIS
     Dosage: UNK
     Route: 065
     Dates: start: 20181106
  25. VORICONAZOLE. [Concomitant]
     Active Substance: VORICONAZOLE
     Indication: FUNGAL INFECTION
     Dosage: UNK
     Route: 065
     Dates: start: 20181109, end: 20181225
  26. HYDROCORTISONE SODIUM SUCCINATE [Concomitant]
     Active Substance: HYDROCORTISONE SODIUM SUCCINATE
     Dosage: UNK
     Route: 065
     Dates: start: 20181114, end: 20181114
  27. FILGRASTIM [Concomitant]
     Active Substance: FILGRASTIM
     Indication: FEBRILE NEUTROPENIA
     Route: 065
     Dates: start: 20181120, end: 20181120
  28. PREDNISOLONE SODIUM SUCCINATE [Concomitant]
     Active Substance: PREDNISOLONE SODIUM SUCCINATE
     Indication: HAEMOPHAGOCYTIC LYMPHOHISTIOCYTOSIS
     Dosage: UNK
     Route: 065
     Dates: start: 20181120, end: 20181120
  29. LANSOPRAZOLE. [Concomitant]
     Active Substance: LANSOPRAZOLE
     Indication: PROPHYLAXIS
     Route: 065
     Dates: start: 20181024
  30. COMPARATOR CYTARABINE [Suspect]
     Active Substance: CYTARABINE
     Indication: ACUTE MYELOID LEUKAEMIA
     Dosage: 200 MG/M2, UNK
     Route: 042
     Dates: start: 20181023
  31. LOXOPROFEN SODIUM HYDRATE [Concomitant]
     Active Substance: LOXOPROFEN SODIUM DIHYDRATE
     Indication: FEBRILE NEUTROPENIA
     Dosage: UNK
     Route: 065
     Dates: start: 20181115, end: 20181115
  32. REBAMIPIDE [Concomitant]
     Active Substance: REBAMIPIDE
     Dosage: UNK
     Route: 065
     Dates: start: 20181117, end: 20181119
  33. METHYLPREDNISOLONE SODIUM SUCCINATE. [Concomitant]
     Active Substance: METHYLPREDNISOLONE SODIUM SUCCINATE
     Indication: HAEMOPHAGOCYTIC LYMPHOHISTIOCYTOSIS
     Route: 005
     Dates: start: 20181120, end: 20181122
  34. SODIUM GUALENATE HYDRATE [Concomitant]
     Active Substance: SODIUM GUALENATE MONOHYDRATE
     Indication: PROPHYLAXIS
     Route: 065
     Dates: start: 20181025
  35. TAZOPIPE [Concomitant]
     Active Substance: PIPERACILLIN SODIUM\TAZOBACTAM SODIUM
     Indication: FEBRILE NEUTROPENIA
     Route: 065
     Dates: start: 20181116, end: 20181120
  36. STOMIN A [Concomitant]
     Active Substance: NIACINAMIDE\PAPAVERINE HYDROCHLORIDE
     Indication: PHARYNGITIS
     Dosage: UNK
     Route: 065
     Dates: start: 20170101
  37. HYDROCORTISONE SODIUM SUCCINATE [Concomitant]
     Active Substance: HYDROCORTISONE SODIUM SUCCINATE
     Indication: PROPHYLAXIS
     Dosage: UNK
     Route: 065
     Dates: start: 20181110, end: 20181112
  38. HYDROCORTISONE SODIUM SUCCINATE [Concomitant]
     Active Substance: HYDROCORTISONE SODIUM SUCCINATE
     Dosage: UNK
     Route: 065
     Dates: start: 20181115, end: 20181118
  39. REBAMIPIDE [Concomitant]
     Active Substance: REBAMIPIDE
     Indication: FEBRILE NEUTROPENIA
     Dosage: UNK
     Route: 065
     Dates: start: 20181115, end: 20181115
  40. INSULIN HUMAN [Concomitant]
     Active Substance: INSULIN HUMAN
     Indication: HYPERGLYCAEMIA
     Route: 065
     Dates: start: 20181121
  41. VITAMIN A [Concomitant]
     Active Substance: VITAMIN A
     Indication: TOXIC SKIN ERUPTION
     Route: 065
     Dates: start: 20181210

REACTIONS (1)
  - Hyponatraemia [Recovered/Resolved with Sequelae]

NARRATIVE: CASE EVENT DATE: 20181203
